FAERS Safety Report 10230878 (Version 1)
Quarter: 2014Q2

REPORT INFORMATION
  Report Type: Spontaneous
  Country: US (occurrence: US)
  Receive Date: 20140611
  Receipt Date: 20140611
  Transmission Date: 20141212
  Serious: No
  Sender: FDA-Public Use
  Company Number: US-BAYER-2014-080346

PATIENT
  Age: 27 Year
  Sex: 0

DRUGS (3)
  1. MAGNEVIST [Suspect]
     Indication: NUCLEAR MAGNETIC RESONANCE IMAGING
     Dosage: 20 ML, ONCE
     Route: 042
     Dates: start: 20140523, end: 20140523
  2. MAGNEVIST [Suspect]
     Indication: MIGRAINE
  3. MAGNEVIST [Suspect]
     Indication: HEADACHE

REACTIONS (1)
  - Urticaria [Recovered/Resolved]
